FAERS Safety Report 5027142-4 (Version None)
Quarter: 2006Q2

REPORT INFORMATION
  Report Type: 
  Country: None (occurrence: None)
  Receive Date: 20060501
  Receipt Date: 20060126
  Transmission Date: 20061013
  Serious: No
  Sender: FDA-Public Use
  Company Number: 2006PV007720

PATIENT
  Age: 64 Year
  Sex: Female
  Weight: 95.2554 kg

DRUGS (4)
  1. SYMLIN INJECTION (0.6 MG/ML) [Suspect]
     Indication: DIABETES MELLITUS
     Dosage: 60 MCG; BID; SC;  30 MCG; BID; 15 MCG; BID
     Route: 058
     Dates: start: 20050101, end: 20050101
  2. SYMLIN INJECTION (0.6 MG/ML) [Suspect]
     Indication: DIABETES MELLITUS
     Dosage: 60 MCG; BID; SC;  30 MCG; BID; 15 MCG; BID
     Route: 058
     Dates: start: 20050101, end: 20050101
  3. SYMLIN INJECTION (0.6 MG/ML) [Suspect]
     Indication: DIABETES MELLITUS
     Dosage: 60 MCG; BID; SC;  30 MCG; BID; 15 MCG; BID
     Route: 058
     Dates: start: 20051101
  4. INSULIN [Concomitant]

REACTIONS (3)
  - INJECTION SITE BRUISING [None]
  - INJECTION SITE HAEMORRHAGE [None]
  - INJECTION SITE PAIN [None]
